FAERS Safety Report 25757548 (Version 2)
Quarter: 2025Q3

REPORT INFORMATION
  Report Type: Report from Study
  Country: CA (occurrence: CA)
  Receive Date: 20250903
  Receipt Date: 20250917
  Transmission Date: 20251021
  Serious: Yes (Other)
  Sender: TAKEDA
  Company Number: CA-TAKEDA-2022TUS007889

PATIENT
  Sex: Female

DRUGS (5)
  1. VEDOLIZUMAB [Suspect]
     Active Substance: VEDOLIZUMAB
     Indication: Crohn^s disease
  2. VEDOLIZUMAB [Suspect]
     Active Substance: VEDOLIZUMAB
  3. ENTOCORT [Concomitant]
     Active Substance: BUDESONIDE
     Indication: Crohn^s disease
  4. PREDNISONE [Concomitant]
     Active Substance: PREDNISONE
  5. STELARA [Concomitant]
     Active Substance: USTEKINUMAB

REACTIONS (17)
  - Crohn^s disease [Recovering/Resolving]
  - Cardiac disorder [Unknown]
  - Diarrhoea [Unknown]
  - Abdominal mass [Unknown]
  - Visual impairment [Unknown]
  - Dry eye [Unknown]
  - Abscess [Unknown]
  - Soft tissue inflammation [Unknown]
  - Malaise [Unknown]
  - Frequent bowel movements [Unknown]
  - Anal incontinence [Unknown]
  - Migraine [Unknown]
  - Abdominal pain [Unknown]
  - Paraesthesia oral [Unknown]
  - Anal fissure [Unknown]
  - Paraesthesia [Unknown]
  - Arthralgia [Unknown]
